FAERS Safety Report 15945633 (Version 1)
Quarter: 2019Q1

REPORT INFORMATION
  Report Type: Spontaneous
  Country: FR (occurrence: FR)
  Receive Date: 20190211
  Receipt Date: 20190211
  Transmission Date: 20190417
  Serious: Yes (Life-Threatening, Hospitalization, Other)
  Sender: FDA-Public Use
  Company Number: FR-ACCORD-106551

PATIENT
  Age: 66 Year
  Sex: Male
  Weight: 59 kg

DRUGS (10)
  1. ATORVASTATIN/ATORVASTATIN CALCIUM [Suspect]
     Active Substance: ATORVASTATIN CALCIUM
     Route: 048
  2. DOLIPRANE [Concomitant]
     Active Substance: ACETAMINOPHEN
  3. ZOPICLONE [Suspect]
     Active Substance: ZOPICLONE
     Route: 048
  4. BISOCE [Suspect]
     Active Substance: BISOPROLOL
     Route: 048
  5. VALSARTAN. [Suspect]
     Active Substance: VALSARTAN
     Route: 048
  6. BROMAZEPAM [Concomitant]
     Active Substance: BROMAZEPAM
  7. CALCIUM CARBONATE/COLECALCIFEROL [Concomitant]
     Active Substance: CALCIUM CARBONATE\CHOLECALCIFEROL
  8. ASPEGIC (ACETYLSALICYLATE LYSINE, GLYCINE) [Concomitant]
     Active Substance: ASPIRIN DL-LYSINE\GLYCINE
  9. PAROXETINE. [Suspect]
     Active Substance: PAROXETINE
     Route: 048
  10. ALPRAZOLAM. [Concomitant]
     Active Substance: ALPRAZOLAM

REACTIONS (3)
  - Bradycardia [Recovered/Resolved]
  - Somnolence [Recovered/Resolved]
  - Suicide attempt [Unknown]

NARRATIVE: CASE EVENT DATE: 20180515
